FAERS Safety Report 14956534 (Version 1)
Quarter: 2018Q2

REPORT INFORMATION
  Report Type: Spontaneous
  Country: US (occurrence: US)
  Receive Date: 20180531
  Receipt Date: 20180531
  Transmission Date: 20180711
  Serious: Yes (Hospitalization)
  Sender: FDA-Public Use
  Company Number: US-ASTELLAS-2018US006460

PATIENT
  Age: 82 Year
  Sex: Male

DRUGS (1)
  1. XTANDI [Suspect]
     Active Substance: ENZALUTAMIDE
     Indication: HORMONE-REFRACTORY PROSTATE CANCER
     Route: 048

REACTIONS (6)
  - Limb discomfort [Unknown]
  - Gait inability [Unknown]
  - Burning sensation [Unknown]
  - Clostridium difficile colitis [Unknown]
  - Asthenia [Unknown]
  - Arthritis [Unknown]

NARRATIVE: CASE EVENT DATE: 20180121
